FAERS Safety Report 10088096 (Version 1)
Quarter: 2014Q2

REPORT INFORMATION
  Report Type: Spontaneous
  Country: US (occurrence: US)
  Receive Date: 20140421
  Receipt Date: 20140421
  Transmission Date: 20141212
  Serious: Yes (Other)
  Sender: FDA-Public Use
  Company Number: US-AMGEN INC.-USASP2014028029

PATIENT
  Age: 72 Year
  Sex: Female
  Weight: 183.22 kg

DRUGS (1)
  1. PROCRIT [Suspect]
     Indication: ANAEMIA
     Dosage: 10000 UNIT, QWK
     Route: 065
     Dates: start: 201401, end: 2014

REACTIONS (5)
  - Bladder cancer [Not Recovered/Not Resolved]
  - Blood urine present [Not Recovered/Not Resolved]
  - Asthenia [Not Recovered/Not Resolved]
  - Haemoglobin decreased [Unknown]
  - Emotional distress [Unknown]
